FAERS Safety Report 5390885-7 (Version None)
Quarter: 2007Q3

REPORT INFORMATION
  Report Type: 
  Country: None (occurrence: None)
  Receive Date: 20070716
  Receipt Date: 20070629
  Transmission Date: 20080115
  Serious: Yes (Death, Hospitalization, Disabling, Other)
  Sender: FDA-Public Use
  Company Number: T200700715

PATIENT
  Age: 14 Year
  Sex: Male

DRUGS (10)
  1. OPTIMARK [Suspect]
     Indication: NUCLEAR MAGNETIC RESONANCE IMAGING BRAIN
     Dosage: 9 ML, SINGLE
     Dates: start: 20040514, end: 20040514
  2. PROHANCE [Suspect]
     Dates: start: 20040514, end: 20040514
  3. MULTIHANCE [Suspect]
     Dates: start: 20040514, end: 20040514
  4. OMNISCAN [Suspect]
     Dates: start: 20040514, end: 20040514
  5. MAGNEVIST [Suspect]
     Dates: start: 20040514, end: 20040514
  6. VINCRISTINE [Concomitant]
  7. DACTINOMYCIN [Concomitant]
  8. CYCLOPHOSPHAMIDE [Concomitant]
  9. IFOSFAMIDE [Concomitant]
  10. ETOPOSIDE [Concomitant]

REACTIONS (25)
  - BRADYCARDIA [None]
  - CACHEXIA [None]
  - CALCINOSIS [None]
  - CARDIAC ARREST [None]
  - CARDIAC FAILURE [None]
  - CARDIOMEGALY [None]
  - CONTINUOUS HAEMODIAFILTRATION [None]
  - DIAPHRAGMATIC DISORDER [None]
  - DISCOMFORT [None]
  - DYSTROPHIC CALCIFICATION [None]
  - FIBROSIS [None]
  - HEADACHE [None]
  - HEPATIC CONGESTION [None]
  - HEPATIC NECROSIS [None]
  - HYPOTENSION [None]
  - INTRACARDIAC THROMBUS [None]
  - METAPLASIA [None]
  - MUSCLE ATROPHY [None]
  - NEPHROGENIC SYSTEMIC FIBROSIS [None]
  - NODAL RHYTHM [None]
  - PAIN IN EXTREMITY [None]
  - PLEURAL FIBROSIS [None]
  - PULMONARY CONGESTION [None]
  - RENAL TRANSPLANT [None]
  - ULCER [None]
